FAERS Safety Report 6653955-9 (Version None)
Quarter: 2010Q1

REPORT INFORMATION
  Report Type: 
  Country: None (occurrence: None)
  Receive Date: 20100326
  Receipt Date: 20100317
  Transmission Date: 20100710
  Serious: Yes (Other)
  Sender: FDA-Public Use
  Company Number: AR-JNJFOC-20100305704

PATIENT
  Age: 2 Year
  Sex: Male

DRUGS (2)
  1. IBUPIRAC 2% [Suspect]
     Indication: PYREXIA
     Route: 048
  2. DIAZEPAM [Concomitant]

REACTIONS (3)
  - CONVULSION [None]
  - DRUG INEFFECTIVE [None]
  - PRODUCT CONTAMINATION MICROBIAL [None]
